FAERS Safety Report 7227008-5 (Version None)
Quarter: 2011Q1

REPORT INFORMATION
  Report Type: 
  Country: None (occurrence: None)
  Receive Date: 20110114
  Receipt Date: 20101227
  Transmission Date: 20110831
  Serious: No
  Sender: FDA-Public Use
  Company Number: US-B.I. PHARMACEUTICALS,INC./RIDGEFIELD-2011-BP-00088BP

PATIENT
  Sex: Male

DRUGS (16)
  1. ASPIRIN [Concomitant]
     Indication: PROPHYLAXIS
  2. METFORMIN HCL [Concomitant]
     Indication: DIABETES MELLITUS
  3. NEXIUM [Concomitant]
     Indication: GASTROOESOPHAGEAL REFLUX DISEASE
  4. MEDICATION NOT FURTHER SPECIFIED [Concomitant]
     Indication: MULTIPLE ALLERGIES
  5. SPIRIVA [Suspect]
     Dosage: 18 MCG
     Route: 055
     Dates: start: 20101201
  6. DIOVAN [Concomitant]
     Indication: CARDIAC DISORDER
  7. NIASPAN [Concomitant]
     Indication: CARDIAC DISORDER
  8. LIPITOR [Concomitant]
     Indication: BLOOD CHOLESTEROL INCREASED
  9. JANUVIA [Concomitant]
     Indication: DIABETES MELLITUS
  10. METOPROLOL [Concomitant]
     Indication: CARDIAC DISORDER
  11. MULTIVITAMIN [Concomitant]
     Indication: PROPHYLAXIS
  12. ALPRAZOLAM [Concomitant]
     Indication: ANXIETY
  13. TRAMADOL [Concomitant]
     Indication: PAIN
  14. SPIRIVA [Suspect]
     Indication: CHRONIC OBSTRUCTIVE PULMONARY DISEASE
     Dosage: 18 MCG
     Route: 055
     Dates: start: 20101001, end: 20101101
  15. ISOSORBIDE DINITRATE [Concomitant]
     Indication: CARDIAC DISORDER
  16. PLAVIX [Concomitant]
     Indication: CARDIAC DISORDER

REACTIONS (2)
  - WHEEZING [None]
  - COUGH [None]
